FAERS Safety Report 19756656 (Version 1)
Quarter: 2021Q3

REPORT INFORMATION
  Report Type: Report from Study
  Country: None (occurrence: PR)
  Receive Date: 20210827
  Receipt Date: 20210827
  Transmission Date: 20211014
  Serious: Yes (Other)
  Sender: FDA-Public Use
  Company Number: PR-ABBVIE-21K-131-4055832-00

PATIENT
  Sex: Female

DRUGS (6)
  1. TOZINAMERAN. [Concomitant]
     Active Substance: TOZINAMERAN
     Dosage: 2ND DOSE
     Route: 058
     Dates: start: 20210521, end: 20210521
  2. TOZINAMERAN. [Concomitant]
     Active Substance: TOZINAMERAN
     Indication: COVID-19 IMMUNISATION
     Dosage: 1ST DOSE
     Route: 058
     Dates: start: 20210429, end: 20210429
  3. HUMIRA [Suspect]
     Active Substance: ADALIMUMAB
     Indication: COLITIS ULCERATIVE
     Route: 058
     Dates: start: 20201014
  4. IMURAN [Concomitant]
     Active Substance: AZATHIOPRINE
     Indication: COLITIS ULCERATIVE
     Route: 048
  5. TOZINAMERAN. [Concomitant]
     Active Substance: TOZINAMERAN
     Dosage: 3RD DOSE
     Route: 058
     Dates: start: 20210821, end: 20210821
  6. PLAQUENIL [Concomitant]
     Active Substance: HYDROXYCHLOROQUINE SULFATE
     Indication: PRODUCT USED FOR UNKNOWN INDICATION
     Route: 048

REACTIONS (1)
  - Thyroid cancer [Unknown]
